FAERS Safety Report 16161338 (Version 2)
Quarter: 2019Q2

REPORT INFORMATION
  Report Type: Report from Study
  Country: None (occurrence: CA)
  Receive Date: 20190405
  Receipt Date: 20190519
  Transmission Date: 20190711
  Serious: Yes (Other)
  Sender: FDA-Public Use
  Company Number: CA-ABBVIE-19K-028-2731938-00

PATIENT
  Sex: Male

DRUGS (6)
  1. HUMIRA [Suspect]
     Active Substance: ADALIMUMAB
     Indication: CROHN^S DISEASE
     Route: 058
     Dates: start: 20141222
  2. HUMIRA [Suspect]
     Active Substance: ADALIMUMAB
     Route: 058
  3. HUMIRA [Suspect]
     Active Substance: ADALIMUMAB
     Dosage: 6 WEEKS
     Route: 058
     Dates: start: 2018
  4. OMEPRAZOLE. [Concomitant]
     Active Substance: OMEPRAZOLE
     Indication: PRODUCT USED FOR UNKNOWN INDICATION
  5. BUDESONIDE. [Concomitant]
     Active Substance: BUDESONIDE
     Indication: PRODUCT USED FOR UNKNOWN INDICATION
  6. CLOTRIMAZOLE. [Suspect]
     Active Substance: CLOTRIMAZOLE
     Indication: FUNGAL INFECTION
     Route: 065

REACTIONS (12)
  - Pruritus generalised [Not Recovered/Not Resolved]
  - Intestinal fistula [Not Recovered/Not Resolved]
  - Nephrolithiasis [Unknown]
  - Ulcer [Unknown]
  - Dry skin [Not Recovered/Not Resolved]
  - Fungal infection [Not Recovered/Not Resolved]
  - Sinus disorder [Unknown]
  - Large intestinal stenosis [Not Recovered/Not Resolved]
  - Lacrimation increased [Unknown]
  - Acne [Not Recovered/Not Resolved]
  - Injection site pain [Not Recovered/Not Resolved]
  - Hepatic steatosis [Unknown]

NARRATIVE: CASE EVENT DATE: 2014
